FAERS Safety Report 21285940 (Version 3)
Quarter: 2023Q1

REPORT INFORMATION
  Report Type: Spontaneous
  Country: IT (occurrence: IT)
  Receive Date: 20220902
  Receipt Date: 20230331
  Transmission Date: 20230417
  Serious: Yes (Other)
  Sender: FDA-Public Use
  Company Number: IT-NOVARTISPH-NVSC2022IT193381

PATIENT
  Age: 77 Year
  Sex: Female
  Weight: 67 kg

DRUGS (6)
  1. RISPERIDONE [Suspect]
     Active Substance: RISPERIDONE
     Indication: Product used for unknown indication
     Dosage: UNK
     Route: 065
  2. LACOSAMIDE [Suspect]
     Active Substance: LACOSAMIDE
     Indication: Epilepsy
     Dosage: 150 MG, QD (75 MILLIGRAM (50 MG 1 AND HALF TABLET), 2X/DAY (BID)
     Route: 065
     Dates: start: 202003, end: 202210
  3. LACOSAMIDE [Suspect]
     Active Substance: LACOSAMIDE
     Dosage: 100 MG, QD (50 MILLIGRAM, 2X/DAY (BID), (BOTH MORNING AND EVENING))
     Route: 065
     Dates: start: 202210
  4. LACOSAMIDE [Suspect]
     Active Substance: LACOSAMIDE
     Dosage: UNK (1X 50MG TABLET IN THE MORNING AND 1X 50MG TABLET IN THE EVENING )
     Route: 065
  5. LEVETIRACETAM [Concomitant]
     Active Substance: LEVETIRACETAM
     Indication: Epilepsy
     Dosage: UNK
     Route: 065
  6. ITALEPT [Concomitant]
     Indication: Epilepsy
     Dosage: 1000 MG, QD (500 MILLIGRAM, 2X/DAY (BID))
     Route: 048
     Dates: start: 201812

REACTIONS (13)
  - Dementia Alzheimer^s type [Unknown]
  - General physical health deterioration [Unknown]
  - Cognitive disorder [Unknown]
  - Epilepsy [Unknown]
  - Parkinson^s disease [Unknown]
  - Pain [Unknown]
  - Bronchitis [Unknown]
  - Dysphagia [Recovered/Resolved]
  - Dysphagia [Not Recovered/Not Resolved]
  - Somnolence [Not Recovered/Not Resolved]
  - Insomnia [Unknown]
  - Fatigue [Unknown]
  - Wrong technique in product usage process [Unknown]

NARRATIVE: CASE EVENT DATE: 20200101
